FAERS Safety Report 8953035 (Version 3)
Quarter: 2013Q1

REPORT INFORMATION
  Report Type: Spontaneous
  Country: DK (occurrence: DK)
  Receive Date: 20121205
  Receipt Date: 20130110
  Transmission Date: 20140127
  Serious: Yes (Life-Threatening, Hospitalization, Other)
  Sender: FDA-Public Use
  Company Number: DK-B.I. PHARMACEUTICALS,INC./RIDGEFIELD-2012-SW-00895DB

PATIENT
  Age: 74 Year
  Sex: Male

DRUGS (6)
  1. PRADAXA [Suspect]
     Indication: ATRIAL FIBRILLATION
     Dosage: 300 MG
     Dates: end: 20121113
  2. PRADAXA [Suspect]
     Dosage: 300 MG
     Dates: start: 201211, end: 20121126
  3. FURIX [Concomitant]
     Dosage: 40 MG
  4. KALEORID [Concomitant]
     Dosage: 1500 MG
  5. ALENDRONIC ACID [Concomitant]
     Dosage: 10 MG
  6. PROPRANOLOL [Concomitant]
     Dosage: 40 MG

REACTIONS (4)
  - Shock haemorrhagic [Not Recovered/Not Resolved]
  - Gastrointestinal haemorrhage [Recovered/Resolved]
  - Haematemesis [Recovered/Resolved]
  - Cardiac failure [Not Recovered/Not Resolved]
